FAERS Safety Report 9840776 (Version 1)
Quarter: 2014Q1

REPORT INFORMATION
  Report Type: Spontaneous
  Country: US (occurrence: US)
  Receive Date: 20140124
  Receipt Date: 20140124
  Transmission Date: 20141002
  Serious: No
  Sender: FDA-Public Use
  Company Number: US-009507513-1401USA010447

PATIENT
  Sex: Male

DRUGS (4)
  1. ZOCOR [Suspect]
     Indication: BLOOD CHOLESTEROL INCREASED
     Dosage: UNK
     Route: 048
     Dates: start: 2010
  2. MICARDIS [Concomitant]
  3. BYSTOLIC [Concomitant]
  4. PLAVIX [Concomitant]

REACTIONS (3)
  - Musculoskeletal pain [Unknown]
  - Insomnia [Unknown]
  - Dyspepsia [Unknown]
